FAERS Safety Report 7060914-3 (Version None)
Quarter: 2010Q4

REPORT INFORMATION
  Report Type: 
  Country: None (occurrence: None)
  Receive Date: 20101025
  Receipt Date: 20101018
  Transmission Date: 20110411
  Serious: Yes (Hospitalization)
  Sender: FDA-Public Use
  Company Number: US-B.I. PHARMACEUTICALS,INC./RIDGEFIELD-2010-BP-11645BP

PATIENT
  Age: 77 Year
  Sex: Male

DRUGS (2)
  1. MIRAPEX [Suspect]
     Indication: PARKINSON'S DISEASE
  2. SINEMET [Concomitant]
     Indication: PARKINSON'S DISEASE

REACTIONS (2)
  - BLADDER PERFORATION [None]
  - INTESTINAL PERFORATION [None]
